FAERS Safety Report 6552943-0 (Version None)
Quarter: 2010Q1

REPORT INFORMATION
  Report Type: 
  Country: None (occurrence: None)
  Receive Date: 20100122
  Receipt Date: 20100115
  Transmission Date: 20100710
  Serious: Yes (Death)
  Sender: FDA-Public Use
  Company Number: 2007US001612

PATIENT
  Age: 78 Year
  Sex: Male

DRUGS (3)
  1. AMBISOME [Suspect]
     Indication: PNEUMONIA
     Dosage: 100 MG, UID/QD, IV DRIP
     Route: 041
     Dates: start: 20070611, end: 20070612
  2. MAXIPIME [Concomitant]
  3. FULCALIQ (AMINO ACIDS NOS, CARBOHYDRATES NOS, ELECTROLYTES NOS, VITAMI [Concomitant]

REACTIONS (3)
  - HYPONATRAEMIA [None]
  - MYELODYSPLASTIC SYNDROME [None]
  - RESPIRATORY FAILURE [None]
